FAERS Safety Report 5950670-1 (Version None)
Quarter: 2008Q4

REPORT INFORMATION
  Report Type: 
  Country: None (occurrence: None)
  Receive Date: 20081112
  Receipt Date: 20081031
  Transmission Date: 20090506
  Serious: Yes (Other)
  Sender: FDA-Public Use
  Company Number: JP-SANOFI-SYNTHELABO-A01200814135

PATIENT
  Age: 76 Year
  Sex: Female

DRUGS (3)
  1. POLYFUL [Concomitant]
     Indication: DRUG USE FOR UNKNOWN INDICATION
     Route: 048
     Dates: start: 20081017
  2. LAC B [Concomitant]
     Indication: DRUG USE FOR UNKNOWN INDICATION
     Route: 048
     Dates: start: 20081017
  3. MYSLEE [Suspect]
     Indication: DRUG USE FOR UNKNOWN INDICATION
     Route: 048
     Dates: start: 20081017, end: 20081020

REACTIONS (3)
  - DELIRIUM [None]
  - DISORIENTATION [None]
  - INTENTIONAL DRUG MISUSE [None]
